FAERS Safety Report 4877341-7 (Version None)
Quarter: 2006Q1

REPORT INFORMATION
  Report Type: 
  Country: None (occurrence: None)
  Receive Date: 20060109
  Receipt Date: 20051228
  Transmission Date: 20060701
  Serious: Yes (Death, Disabling)
  Sender: FDA-Public Use
  Company Number: CERZ-11094

PATIENT
  Age: 3 Year
  Sex: Female
  Weight: 8.5 kg

DRUGS (1)
  1. CEREZYME [Suspect]
     Indication: GAUCHER'S DISEASE
     Dosage: 60 U/KG Q2WKS IV
     Route: 042
     Dates: start: 20040706, end: 20051204

REACTIONS (6)
  - BRONCHOPNEUMONIA [None]
  - CACHEXIA [None]
  - CARDIOPULMONARY FAILURE [None]
  - FAILURE TO THRIVE [None]
  - MUSCLE SPASTICITY [None]
  - OPHTHALMOPLEGIA [None]
